FAERS Safety Report 4521672-7 (Version None)
Quarter: 2004Q4

REPORT INFORMATION
  Report Type: 
  Country: None (occurrence: None)
  Receive Date: 20041206
  Receipt Date: 20041124
  Transmission Date: 20050328
  Serious: Yes (Hospitalization)
  Sender: FDA-Public Use
  Company Number: ZONI002066

PATIENT
  Age: 56 Year
  Sex: Female

DRUGS (4)
  1. EXCEGRAN (ZONISAMIDE) [Suspect]
     Indication: SUBDURAL HAEMATOMA
     Dosage: 100 MG, ORAL
     Route: 048
     Dates: start: 20001121, end: 20010104
  2. BLOCKLIN-L (PINDOLOL) [Concomitant]
  3. CALSLOT (MANIDIPINE HYDROCHLORIDE) [Concomitant]
  4. ADECUT (DELAPRIL HYDROCHLORIDE) [Concomitant]

REACTIONS (6)
  - BLISTER [None]
  - CONJUNCTIVAL HYPERAEMIA [None]
  - GENERALISED ERYTHEMA [None]
  - PHARYNGOLARYNGEAL PAIN [None]
  - PURULENT DISCHARGE [None]
  - RASH [None]
